FAERS Safety Report 18162363 (Version 1)
Quarter: 2020Q3

REPORT INFORMATION
  Report Type: Spontaneous
  Country: US (occurrence: US)
  Receive Date: 20200818
  Receipt Date: 20200818
  Transmission Date: 20201103
  Serious: No
  Sender: FDA-Public Use
  Company Number: US-LUPIN PHARMACEUTICALS INC.-2020-04352

PATIENT
  Sex: Female
  Weight: 77 kg

DRUGS (3)
  1. METFORMIN HYDROCHLORIDE EXTENDED RELEASE TABLET USP, 1000 MG [Suspect]
     Active Substance: METFORMIN HYDROCHLORIDE
     Indication: TYPE 2 DIABETES MELLITUS
     Dosage: UNK
     Route: 065
  2. METFORMIN HYDROCHLORIDE EXTENDED RELEASE TABLET USP, 1000 MG [Suspect]
     Active Substance: METFORMIN HYDROCHLORIDE
     Dosage: 1000 MILLIGRAM, BID
     Route: 048
     Dates: start: 20200728, end: 20200730
  3. METFORMIN HYDROCHLORIDE EXTENDED RELEASE TABLET USP, 1000 MG [Suspect]
     Active Substance: METFORMIN HYDROCHLORIDE
     Dosage: 1000 MILLIGRAM, BID
     Route: 048
     Dates: start: 20200430, end: 20200728

REACTIONS (2)
  - Recalled product administered [Unknown]
  - No adverse event [Unknown]
